FAERS Safety Report 19885559 (Version 1)
Quarter: 2021Q3

REPORT INFORMATION
  Report Type: Spontaneous
  Country: US (occurrence: US)
  Receive Date: 20210927
  Receipt Date: 20210927
  Transmission Date: 20211014
  Serious: Yes (Other)
  Sender: FDA-Public Use
  Company Number: US-MELINTA THERAPEUTICS, LLC-US-MLNT-21-00006

PATIENT
  Sex: Male

DRUGS (2)
  1. ORBACTIV [Suspect]
     Active Substance: ORITAVANCIN
     Dosage: NOT PROVIDED.
     Route: 041
  2. ORBACTIV [Suspect]
     Active Substance: ORITAVANCIN
     Indication: INFECTION
     Dosage: NOT PROVIDED.
     Route: 041

REACTIONS (1)
  - Chest pain [Unknown]
